FAERS Safety Report 6540426-3 (Version None)
Quarter: 2010Q1

REPORT INFORMATION
  Report Type: 
  Country: None (occurrence: None)
  Receive Date: 20100113
  Receipt Date: 20100106
  Transmission Date: 20100710
  Serious: Yes (Other)
  Sender: FDA-Public Use
  Company Number: 2009SP042302

PATIENT
  Age: 44 Year
  Sex: Female

DRUGS (10)
  1. IMPLANON [Suspect]
     Indication: DRUG USE FOR UNKNOWN INDICATION
     Dates: start: 20081212
  2. PREDNISONE TAB [Concomitant]
  3. CELLCEPT [Concomitant]
  4. SINGULAIR [Concomitant]
  5. IRON [Concomitant]
  6. CALCIUM [Concomitant]
  7. POTASSIUM [Concomitant]
  8. NEXIUM [Concomitant]
  9. DARVOCET [Concomitant]
  10. VALTREX [Concomitant]

REACTIONS (1)
  - ERYTHEMA NODOSUM [None]
